FAERS Safety Report 4347221-4 (Version None)
Quarter: 2004Q2

REPORT INFORMATION
  Report Type: 
  Country: None (occurrence: None)
  Receive Date: 20040426
  Receipt Date: 20031023
  Transmission Date: 20050107
  Serious: Yes (Hospitalization, Other)
  Sender: FDA-Public Use
  Company Number: NL-MERCK-0310NLD00020

PATIENT
  Age: 49 Year
  Sex: Female

DRUGS (10)
  1. ZETIA [Suspect]
     Indication: TYPE IIA HYPERLIPIDAEMIA
     Route: 048
     Dates: start: 20030920, end: 20031023
  2. ZETIA [Suspect]
     Route: 048
  3. HYDROCHLOROTHIAZIDE [Concomitant]
     Route: 065
  4. LEVOTHYROXINE SODIUM [Concomitant]
     Route: 065
  5. METFORMIN [Concomitant]
     Indication: DIABETES MELLITUS NON-INSULIN-DEPENDENT
     Route: 065
  6. PERINDOPRIL ERBUMINE [Concomitant]
     Route: 065
  7. TOLBUTAMIDE [Concomitant]
     Indication: DIABETES MELLITUS NON-INSULIN-DEPENDENT
     Route: 065
  8. ASPIRIN CALCIUM [Concomitant]
     Route: 065
  9. ATORVASTATIN CALCIUM [Suspect]
     Indication: TYPE IIA HYPERLIPIDAEMIA
     Route: 048
     Dates: start: 20020101, end: 20031029
  10. BISOPROLOL FUMARATE [Concomitant]
     Route: 065

REACTIONS (1)
  - RHABDOMYOLYSIS [None]
